FAERS Safety Report 4309379-2 (Version None)
Quarter: 2004Q1

REPORT INFORMATION
  Report Type: 
  Country: None (occurrence: None)
  Receive Date: 20040302
  Receipt Date: 20040226
  Transmission Date: 20041129
  Serious: Yes (Hospitalization)
  Sender: FDA-Public Use
  Company Number: JP-ROCHE-359864

PATIENT
  Age: 55 Year
  Sex: Female

DRUGS (1)
  1. HORIZON [Suspect]
     Dosage: FREQUENCY REPORTED AS 2-3 TIMES A WEEK.
     Route: 030
     Dates: start: 19990615

REACTIONS (3)
  - NECROSIS [None]
  - SKIN GRAFT [None]
  - SKIN NECROSIS [None]
